FAERS Safety Report 7202089-3 (Version None)
Quarter: 2010Q4

REPORT INFORMATION
  Report Type: 
  Country: None (occurrence: None)
  Receive Date: 20101216
  Receipt Date: 20101202
  Transmission Date: 20110411
  Serious: Yes (Death, Life-Threatening, Hospitalization, Other)
  Sender: FDA-Public Use
  Company Number: MC201000391

PATIENT
  Age: 65 Year
  Sex: Male

DRUGS (26)
  1. ANGIOMAX [Suspect]
     Dosage: 0.75 MG/KG, BOLUS INTRAVENOUS, 1.75 MG/KG, HR, INTRAVENOUS
     Route: 040
     Dates: start: 20060213, end: 20060201
  2. ANGIOMAX [Suspect]
     Dosage: 0.75 MG/KG, BOLUS INTRAVENOUS, 1.75 MG/KG, HR, INTRAVENOUS
     Route: 040
     Dates: start: 20060213, end: 20080213
  3. ET-000.216 [Suspect]
     Indication: ACUTE CORONARY SYNDROME
     Dosage: 1500 MG, INTRAVENOUS
     Route: 042
     Dates: start: 20060214, end: 20060214
  4. SODIUM CHLORIDE [Concomitant]
  5. FENTANYL CITRATE [Concomitant]
  6. LIPITOR [Concomitant]
  7. CAPOTEN [Concomitant]
  8. ALUMINUM HYDROXIDE AND MAGNESIUM TRISILICATE [Concomitant]
  9. NITROGLYCERIN [Concomitant]
  10. VERSED [Concomitant]
  11. HEPARIN [Concomitant]
  12. INTEGRILIN [Concomitant]
  13. VISPAQUE (IODINE, LODIXANOL) [Concomitant]
  14. SUDAFED 12 HOUR [Concomitant]
  15. FOLIC ACID [Concomitant]
  16. DILACOR XR [Concomitant]
  17. ASPIRIN [Concomitant]
  18. VITAMIN B6 [Concomitant]
  19. VITAMIN B12 (HYDROXOCOBALAMIN) [Concomitant]
  20. DIMETANE DX (BROMPHENIRAMINE MALEATE, DEXTROMETHORPHAN HYDROBROMIDE, P [Concomitant]
  21. NITROSTAT [Concomitant]
  22. ASPIRIN [Concomitant]
  23. PLAVIX [Concomitant]
  24. LOPRESSOR [Concomitant]
  25. LISINOPRIL (LISINOPRIL DIHYDRATE) [Concomitant]
  26. REOPRO [Concomitant]

REACTIONS (32)
  - ACUTE MYOCARDIAL INFARCTION [None]
  - CARDIAC TAMPONADE [None]
  - CARDIOGENIC SHOCK [None]
  - CHEST DISCOMFORT [None]
  - CHILLS [None]
  - COMPARTMENT SYNDROME [None]
  - CORONARY ARTERY BYPASS [None]
  - DIALYSIS [None]
  - DYSLIPIDAEMIA [None]
  - ELECTROCARDIOGRAM ST SEGMENT ELEVATION [None]
  - EOSINOPHILIA [None]
  - FIBROSIS [None]
  - FLUSHING [None]
  - HAEMORRHAGE [None]
  - HAEMOTHORAX [None]
  - HYPERSENSITIVITY [None]
  - HYPOTENSION [None]
  - HYPOXIC-ISCHAEMIC ENCEPHALOPATHY [None]
  - ISCHAEMIA [None]
  - LIVER INJURY [None]
  - MULTI-ORGAN FAILURE [None]
  - MYOCARDIAL INFARCTION [None]
  - NAUSEA [None]
  - PALLOR [None]
  - PERIPHERAL ISCHAEMIA [None]
  - RENAL FAILURE ACUTE [None]
  - SECONDARY HYPERTENSION [None]
  - SEDATION [None]
  - SHOCK [None]
  - SOCIAL AVOIDANT BEHAVIOUR [None]
  - TRANSAMINASES INCREASED [None]
  - VASCULITIS [None]
